FAERS Safety Report 8093116-2 (Version None)
Quarter: 2012Q1

REPORT INFORMATION
  Report Type: 
  Country: None (occurrence: None)
  Receive Date: 20120128
  Receipt Date: 20111010
  Transmission Date: 20120608
  Serious: No
  Sender: FDA-Public Use
  Company Number: US-ABBOTT-11P-163-0850547-00

PATIENT
  Age: 63 Year
  Sex: Male

DRUGS (12)
  1. CO Q 10 [Concomitant]
     Indication: PRODUCT USED FOR UNKNOWN INDICATION
     Dates: start: 20090101
  2. OMEGA-3 KRILL OIL [Concomitant]
     Indication: PRODUCT USED FOR UNKNOWN INDICATION
     Dates: start: 20110301
  3. LIPITOR [Suspect]
     Indication: PRODUCT USED FOR UNKNOWN INDICATION
     Dates: start: 20050101, end: 20090101
  4. ASPIRIN [Concomitant]
     Indication: CARDIAC DISORDER
     Dates: start: 20050101
  5. RAMIPRIL [Concomitant]
     Indication: CARDIAC DISORDER
     Dates: start: 20050101
  6. MULTI-VITAMIN [Concomitant]
     Indication: CARDIAC DISORDER
     Dates: start: 20070101
  7. CRESTOR [Concomitant]
     Indication: PRODUCT USED FOR UNKNOWN INDICATION
     Dates: start: 20090101
  8. HUMIRA [Suspect]
     Indication: PSORIASIS
     Dates: start: 20071201
  9. TRICOR [Concomitant]
     Indication: BLOOD CHOLESTEROL INCREASED
     Dates: start: 20050101
  10. CARVEDILOL [Concomitant]
     Indication: CARDIAC DISORDER
     Dates: start: 20050101
  11. NIASPAN [Concomitant]
     Indication: CARDIAC DISORDER
     Dates: start: 20050101
  12. ZETIA [Concomitant]
     Indication: PRODUCT USED FOR UNKNOWN INDICATION
     Dates: start: 20090101

REACTIONS (8)
  - MUSCULAR WEAKNESS [None]
  - ASTHENIA [None]
  - VITAMIN D DECREASED [None]
  - FATIGUE [None]
  - PAIN IN EXTREMITY [None]
  - MUSCLE MASS [None]
  - ERYTHEMA [None]
  - DEPRESSION [None]
